FAERS Safety Report 12546835 (Version 4)
Quarter: 2018Q1

REPORT INFORMATION
  Report Type: Report from Study
  Country: None (occurrence: US)
  Receive Date: 20160711
  Receipt Date: 20180227
  Transmission Date: 20180508
  Serious: Yes (Hospitalization, Other)
  Sender: FDA-Public Use
  Company Number: US-ABBVIE-16K-163-1661083-00

PATIENT
  Age: 32 Year
  Sex: Female
  Weight: 76.27 kg

DRUGS (5)
  1. PREDNISONE. [Concomitant]
     Active Substance: PREDNISONE
     Indication: CROHN^S DISEASE
  2. FERROUS SULFATE. [Concomitant]
     Active Substance: FERROUS SULFATE
     Indication: IRON DEFICIENCY ANAEMIA
  3. HUMIRA [Suspect]
     Active Substance: ADALIMUMAB
     Indication: CROHN^S DISEASE
     Dosage: LOADING DOSE
     Route: 058
     Dates: start: 20151026, end: 20151026
  4. HUMIRA [Suspect]
     Active Substance: ADALIMUMAB
     Route: 058
     Dates: start: 20151123, end: 2017
  5. HUMIRA [Suspect]
     Active Substance: ADALIMUMAB
     Dosage: LOADING DOSE
     Route: 058
     Dates: start: 20151109, end: 20151109

REACTIONS (11)
  - Postoperative wound infection [Unknown]
  - Post procedural discharge [Unknown]
  - Fistula discharge [Not Recovered/Not Resolved]
  - Anal fistula [Unknown]
  - Haemoglobin decreased [Unknown]
  - Therapeutic response unexpected [Unknown]
  - Anal polyp [Recovering/Resolving]
  - Haematochezia [Unknown]
  - Rectal abscess [Unknown]
  - Pre-existing condition improved [Unknown]
  - Subcutaneous abscess [Not Recovered/Not Resolved]

NARRATIVE: CASE EVENT DATE: 201602
